FAERS Safety Report 16534116 (Version 2)
Quarter: 2019Q3

REPORT INFORMATION
  Report Type: Report from Study
  Country: US (occurrence: US)
  Receive Date: 20190705
  Receipt Date: 20190715
  Transmission Date: 20191004
  Serious: Yes (Hospitalization, Other)
  Sender: FDA-Public Use
  Company Number: US-ARIAD PHARMACEUTICALS, INC-2017US008631

PATIENT
  Age: 61 Year
  Sex: Female
  Weight: 64 kg

DRUGS (8)
  1. SANDOSTATIN [Concomitant]
     Active Substance: OCTREOTIDE ACETATE
     Indication: CARCINOID TUMOUR OF THE SMALL BOWEL
     Dosage: 30 MG, EVERY TWO WEEKS
     Route: 030
  2. PONATINIB [Suspect]
     Active Substance: PONATINIB
     Dosage: 15 MG, QD
     Route: 048
  3. PONATINIB [Suspect]
     Active Substance: PONATINIB
     Dosage: 30 MG, QD
     Route: 048
     Dates: start: 201707
  4. PONATINIB [Suspect]
     Active Substance: PONATINIB
     Indication: CHRONIC MYELOID LEUKAEMIA
     Dosage: 30 MG, QD
     Route: 048
     Dates: start: 20170622, end: 20170627
  5. HYDROXYUREA. [Suspect]
     Active Substance: HYDROXYUREA
     Indication: THROMBOCYTOSIS
     Dosage: UNK
     Route: 065
     Dates: start: 20170613, end: 20170625
  6. PONATINIB [Suspect]
     Active Substance: PONATINIB
     Dosage: 45 MILLIGRAM, QD
     Route: 048
  7. PONATINIB [Suspect]
     Active Substance: PONATINIB
     Dosage: 30 MILLIGRAM
     Route: 048
     Dates: start: 20190330
  8. ASPIRIN                            /00002701/ [Concomitant]
     Active Substance: ASPIRIN
     Indication: CARDIOVASCULAR EVENT PROPHYLAXIS
     Dosage: 81 MG, QD
     Route: 048

REACTIONS (17)
  - Small intestinal obstruction [Unknown]
  - Hypertension [Recovered/Resolved]
  - Therapeutic response decreased [Recovered/Resolved]
  - Respiratory distress [Recovered/Resolved]
  - Haematocrit decreased [Recovered/Resolved]
  - Wound infection [Recovered/Resolved]
  - Oral herpes [Recovered/Resolved]
  - Nausea [Unknown]
  - Delirium [Recovered/Resolved]
  - Hypernatraemia [Recovered/Resolved]
  - Hepatic steatosis [Recovered/Resolved]
  - Pneumonia aspiration [Recovered/Resolved]
  - Febrile neutropenia [Recovered/Resolved]
  - Pleural effusion [Unknown]
  - Thrombocytopenia [Recovered/Resolved]
  - Myoclonus [Recovered/Resolved]
  - Malnutrition [Unknown]

NARRATIVE: CASE EVENT DATE: 20170628
